FAERS Safety Report 7978732-8 (Version None)
Quarter: 2011Q4

REPORT INFORMATION
  Report Type: 
  Country: None (occurrence: None)
  Receive Date: 20111214
  Receipt Date: 20111206
  Transmission Date: 20120403
  Serious: Yes (Other)
  Sender: FDA-Public Use
  Company Number: FR-ASTELLAS-2011EU007832

PATIENT
  Age: 10 Year
  Sex: Male

DRUGS (1)
  1. PROTOPIC [Suspect]
     Dosage: UNK
     Route: 065
     Dates: start: 20040101, end: 20080201

REACTIONS (1)
  - MYCOSIS FUNGOIDES [None]
